FAERS Safety Report 18570323 (Version 2)
Quarter: 2020Q4

REPORT INFORMATION
  Report Type: Spontaneous
  Country: US (occurrence: US)
  Receive Date: 20201202
  Receipt Date: 20201204
  Transmission Date: 20210114
  Serious: No
  Sender: FDA-Public Use
  Company Number: US-PFIZER INC-2020474606

PATIENT
  Age: 77 Year
  Sex: Female
  Weight: 63.5 kg

DRUGS (2)
  1. IBRANCE [Suspect]
     Active Substance: PALBOCICLIB
     Indication: BREAST CANCER FEMALE
     Dosage: 125 MG, CYCLIC (125MG DAILY FOR 21 DAYS THEN OFF 7 DAYS; BY MOUTH)
     Route: 048
  2. ANASTROZOLE. [Concomitant]
     Active Substance: ANASTROZOLE
     Indication: HORMONE THERAPY
     Dosage: 1 MG, 1X/DAY (1MG; TAKE ONE TABLET BY MOUTH A DAY)
     Route: 048

REACTIONS (4)
  - Rash macular [Unknown]
  - Skin irritation [Unknown]
  - Pain [Unknown]
  - Breast discolouration [Unknown]

NARRATIVE: CASE EVENT DATE: 202011
